FAERS Safety Report 5108510-9 (Version None)
Quarter: 2006Q3

REPORT INFORMATION
  Report Type: 
  Country: None (occurrence: None)
  Receive Date: 20060731
  Receipt Date: 20060608
  Transmission Date: 20061208
  Serious: No
  Sender: FDA-Public Use
  Company Number: 2006PV015284

PATIENT
  Age: 73 Year
  Sex: Female

DRUGS (4)
  1. BYETTA [Suspect]
     Indication: DIABETES MELLITUS NON-INSULIN-DEPENDENT
     Dosage: 5 MCG;BID;SC
     Route: 058
     Dates: start: 20060501, end: 20060601
  2. PEPCID [Concomitant]
  3. TUMS [Concomitant]
  4. ROLAIDS [Concomitant]

REACTIONS (4)
  - BALANCE DISORDER [None]
  - DEPRESSED MOOD [None]
  - NAUSEA [None]
  - SOMNOLENCE [None]
